FAERS Safety Report 9316296 (Version 1)
Quarter: 2013Q2

REPORT INFORMATION
  Report Type: Spontaneous
  Country: IN (occurrence: None)
  Receive Date: 20130522
  Receipt Date: 20130522
  Transmission Date: 20140414
  Serious: Yes (Other)
  Sender: FDA-Public Use
  Company Number: AUR-APL-2013-04137

PATIENT
  Age: 60 Year
  Sex: Male

DRUGS (2)
  1. CIPROFLOXACIN (CIPROFLOXACIN) [Suspect]
     Indication: ANTIBIOTIC PROPHYLAXIS
     Dosage: SINGLE DOSE
     Route: 048
  2. CIPROFLOXACIN [Suspect]
     Indication: ANTIBIOTIC PROPHYLAXIS
     Dosage: OPHTHALMIC
     Route: 047

REACTIONS (9)
  - Dermatitis bullous [None]
  - Drug eruption [None]
  - Lip erosion [None]
  - Eye swelling [None]
  - Pruritus genital [None]
  - Pruritus [None]
  - Pruritus [None]
  - Scab [None]
  - Burning sensation [None]
